FAERS Safety Report 25546634 (Version 2)
Quarter: 2025Q3

REPORT INFORMATION
  Report Type: Spontaneous
  Country: AU (occurrence: AU)
  Receive Date: 20250713
  Receipt Date: 20250808
  Transmission Date: 20251021
  Serious: Yes (Hospitalization)
  Sender: JOHNSON AND JOHNSON
  Company Number: AU-MLMSERVICE-20250602-PI528749-00108-1

PATIENT
  Age: 46 Year
  Sex: Male

DRUGS (7)
  1. INVEGA [Suspect]
     Active Substance: PALIPERIDONE
     Indication: Schizophrenia
     Route: 048
  2. CLOZAPINE [Suspect]
     Active Substance: CLOZAPINE
     Indication: Schizophrenia
     Dosage: GRADUAL UP TITRATION FROM 12.5 MG ONCE DAILY, TO TWICE DAILY
  3. CLOZAPINE [Suspect]
     Active Substance: CLOZAPINE
     Dosage: GRADUAL UP TITRATION FROM 12.5 MG ONCE DAILY, TO TWICE DAILY
  4. CLOZAPINE [Suspect]
     Active Substance: CLOZAPINE
     Dosage: INCREASED DOSING OF 25 MG EVERY 3 DAYS TO A TREATMENT DOSE OF 250 MG PER DAY
  5. CLOZAPINE [Suspect]
     Active Substance: CLOZAPINE
     Dosage: INCREASED DOSING OF 25 MG EVERY 3 DAYS TO A TREATMENT DOSE OF 250 MG PER DAY
  6. FLUVOXAMINE [Suspect]
     Active Substance: FLUVOXAMINE
     Indication: Schizophrenia
     Dosage: UP TITRATED TO 50 MG DAILY
  7. OLANZAPINE [Suspect]
     Active Substance: OLANZAPINE
     Indication: Schizophrenia
     Route: 048

REACTIONS (4)
  - Pulmonary embolism [Recovering/Resolving]
  - Tachycardia [Unknown]
  - Salivary hypersecretion [Unknown]
  - Drug ineffective [Unknown]
